FAERS Safety Report 18580081 (Version 2)
Quarter: 2021Q1

REPORT INFORMATION
  Report Type: Spontaneous
  Country: TR (occurrence: TR)
  Receive Date: 20201204
  Receipt Date: 20210118
  Transmission Date: 20210419
  Serious: Yes (Other)
  Sender: FDA-Public Use
  Company Number: TR-ABBVIE-20P-161-3676845-00

PATIENT
  Age: 54 Year
  Sex: Male

DRUGS (9)
  1. OCREVUS [Concomitant]
     Active Substance: OCRELIZUMAB
     Indication: MULTIPLE SCLEROSIS
     Dosage: PAT.USED CONCOMITANTLY DRUG CALLED OCREVUS FOR 4HRS INTRAVENOUSLY IN 6 EVERY MONTHS FOR MS
     Route: 042
  2. EPDANTOIN [Concomitant]
     Indication: EPILEPSY
     Dosage: PAT. HAS CONCOMITANTLY BEEN USING 3 EPDANTOIN A DAY AS ONE AND HALF IN MORNING AND EVENING
  3. TEGRETOL [Concomitant]
     Active Substance: CARBAMAZEPINE
     Indication: EPILEPSY
     Dosage: THE PATIENT HAS CONCOMITANTLY BEEN USING FOUR TEGRETOL A DAY AS TWO IN MORNING AND EVENING
  4. KLACID [Suspect]
     Active Substance: CLARITHROMYCIN
     Indication: TOOTHACHE
     Dosage: DAILY DOSE: 1000 MG; 500 MG TWO TIMES A DAY AT 12?HOUR INTERVALS IN MORNING AND EVENING
     Route: 048
     Dates: start: 20201119, end: 20201126
  5. LIORESAL [Concomitant]
     Active Substance: BACLOFEN
     Indication: URINARY TRACT INFECTION
     Dosage: PAT. USED 5 LIORESAL A DAY: TWO IN MORNING/ONE TOWARD EVENING(AT 04.00 PM)/TWO IN EVENING.
  6. FLOMAX [Concomitant]
     Active Substance: TAMSULOSIN HYDROCHLORIDE
     Indication: URINARY TRACT INFECTION
     Dosage: THE PATIENT HAS BEEN USING ONE FLOMAX A DAY.
  7. DEPAKINE [Interacting]
     Active Substance: VALPROATE SODIUM
     Indication: EPILEPSY
     Dosage: PATIENT HAS CONCOMITANTLY BEEN USING TWO DEPAKIN A DAY AS ONE IN THE MORNING AND EVENING.
     Route: 065
  8. NOOTROPIL [Concomitant]
     Active Substance: PIRACETAM
     Indication: EPILEPSY
     Dosage: PAT.USED CONCOMITANTLY TWO NOOTROPIL 800 A DAY AS ONE IN THE MORNING AND EVENING
  9. BENEXOL B [Concomitant]
     Indication: VITAMIN SUPPLEMENTATION
     Dosage: ONE BENEXOL A DAY AS A VITAMIN IN THE MORNING

REACTIONS (7)
  - Drug interaction [Recovered/Resolved]
  - Balance disorder [Recovered/Resolved]
  - Tremor [Recovered/Resolved]
  - Dizziness [Recovered/Resolved]
  - Visual impairment [Recovered/Resolved]
  - Condition aggravated [Recovered/Resolved]
  - Tinnitus [Recovered/Resolved]

NARRATIVE: CASE EVENT DATE: 202011
